FAERS Safety Report 5977162-8 (Version None)
Quarter: 2008Q4

REPORT INFORMATION
  Report Type: 
  Country: None (occurrence: None)
  Receive Date: 20081201
  Receipt Date: 20081201
  Transmission Date: 20090506
  Serious: Yes (Life-Threatening, Disabling, Other)
  Sender: FDA-Public Use
  Company Number: None

PATIENT
  Sex: Male
  Weight: 88.4514 kg

DRUGS (2)
  1. CHANTIX [Suspect]
     Indication: SMOKING CESSATION THERAPY
     Dosage: .5MG 2X DAILY PO FAILED TO QUIT SMOKING DIDN'T REFIL RX
     Route: 048
     Dates: start: 20070315, end: 20070510
  2. CHANTIX [Suspect]
     Indication: SMOKING CESSATION THERAPY
     Dosage: .5MG 2X DAILY PO FAILED TO QUIT SMOKING DIDN'T REFIL RX
     Route: 048
     Dates: start: 20080315, end: 20080510

REACTIONS (12)
  - APATHY [None]
  - BEREAVEMENT REACTION [None]
  - COGNITIVE DISORDER [None]
  - DELUSION [None]
  - IMPAIRED SELF-CARE [None]
  - IMPATIENCE [None]
  - INTENTIONAL SELF-INJURY [None]
  - JOB DISSATISFACTION [None]
  - PROMISCUITY [None]
  - SOCIAL AVOIDANT BEHAVIOUR [None]
  - SUICIDE ATTEMPT [None]
  - THINKING ABNORMAL [None]
